FAERS Safety Report 10542979 (Version 1)
Quarter: 2014Q4

REPORT INFORMATION
  Report Type: Spontaneous
  Country: US (occurrence: None)
  Receive Date: 20141024
  Receipt Date: 20141024
  Transmission Date: 20150529
  Serious: Yes (Life-Threatening, Other)
  Sender: FDA-Public Use
  Company Number: None

PATIENT
  Age: 94 Year
  Sex: Female

DRUGS (1)
  1. NUEDEXTA [Suspect]
     Active Substance: DEXTROMETHORPHAN HYDROBROMIDE\QUINIDINE SULFATE
     Indication: ILL-DEFINED DISORDER
     Dosage: TAKEN BY MOUTH
     Route: 048
     Dates: start: 20141017, end: 20141020

REACTIONS (2)
  - Blood blister [None]
  - Speech disorder [None]

NARRATIVE: CASE EVENT DATE: 20141017
